FAERS Safety Report 6873418-5 (Version None)
Quarter: 2010Q3

REPORT INFORMATION
  Report Type: 
  Country: None (occurrence: None)
  Receive Date: 20100721
  Receipt Date: 20100709
  Transmission Date: 20110219
  Serious: Yes (Other)
  Sender: FDA-Public Use
  Company Number: 7010598

PATIENT
  Age: 49 Year
  Sex: Male
  Weight: 86 kg

DRUGS (2)
  1. REBIF [Suspect]
     Indication: MULTIPLE SCLEROSIS
     Dosage: 44 MCG, 3 IN 1 WK
     Dates: start: 20061027, end: 20100109
  2. HYDROCODONE BITARTRATE [Concomitant]

REACTIONS (2)
  - MUSCULOSKELETAL STIFFNESS [None]
  - TRANSIENT ISCHAEMIC ATTACK [None]
